FAERS Safety Report 7829793-8 (Version None)
Quarter: 2011Q4

REPORT INFORMATION
  Report Type: 
  Country: None (occurrence: None)
  Receive Date: 20111018
  Receipt Date: 20111006
  Transmission Date: 20120403
  Serious: Yes (Disabling)
  Sender: FDA-Public Use
  Company Number: 2011AP002333

PATIENT
  Age: 67 Year
  Sex: Female

DRUGS (6)
  1. STRONTIUM RANELATE (STRONTIUM RANELATE) [Concomitant]
  2. ZOPICLONE (ZOPICLONE) [Concomitant]
  3. RAMIPRIL [Suspect]
     Indication: HYPERTENSION
     Dosage: 5 MG;BID; PO
     Route: 048
     Dates: start: 20110407
  4. INDAPAMIDE [Concomitant]
  5. ADCAL D3 (LEKOVIT CA) [Concomitant]
  6. BACLOFEN [Concomitant]

REACTIONS (1)
  - ONYCHOMYCOSIS [None]
